FAERS Safety Report 21022280 (Version 1)
Quarter: 2022Q2

REPORT INFORMATION
  Report Type: Spontaneous
  Country: US (occurrence: None)
  Receive Date: 20220628
  Receipt Date: 20220628
  Transmission Date: 20220721
  Serious: Yes (Hospitalization)
  Sender: FDA-Public Use
  Company Number: None

PATIENT
  Age: 37 Year
  Sex: Female

DRUGS (1)
  1. AUBAGIO [Suspect]
     Active Substance: TERIFLUNOMIDE
     Dosage: FREQUENCY : DAILY;?
     Route: 048
     Dates: start: 20210625

REACTIONS (4)
  - Diarrhoea [None]
  - Sepsis [None]
  - Buttock injury [None]
  - Feeding tube user [None]

NARRATIVE: CASE EVENT DATE: 20220622
